FAERS Safety Report 8118431 (Version 6)
Quarter: 2012Q4

REPORT INFORMATION
  Report Type: 
  Country: US (occurrence: US)
  Receive Date: 20110902
  Receipt Date: 20120912
  Transmission Date: 20130627
  Serious: Yes (Death, Life-Threatening, Hospitalization, Other)
  Sender: FDA-Public Use
  Company Number: US-ROXANE LABORATORIES, INC.-2011-RO-01200RO

PATIENT
  Age: 68 Year
  Sex: Female
  Weight: 88 kg

DRUGS (15)
  1. DEXAMETHASONE [Suspect]
     Indication: PALLIATIVE CARE
     Dosage: 8 mg
     Route: 048
     Dates: start: 20110705
  2. CRIZOTINIB [Suspect]
     Indication: NON-SMALL CELL LUNG CANCER
     Dosage: 500 mg
     Route: 048
     Dates: start: 20110726, end: 20110816
  3. ATORVASTATIN [Concomitant]
     Indication: HYPERCHOLESTEROLAEMIA
     Dosage: 10 mg
     Route: 048
  4. CALCIUM [Concomitant]
     Dosage: 1000 mg
     Route: 048
  5. COLACE [Concomitant]
     Dosage: 100 mg
     Route: 048
  6. FOLIC ACID [Concomitant]
     Dosage: 1 mg
     Route: 048
  7. VICOPROFEN [Concomitant]
     Route: 048
  8. LEVOTHYROXINE [Concomitant]
     Dosage: 100 mg
     Route: 048
  9. OMEPRAZOLE [Concomitant]
     Dosage: 20 mg
     Route: 048
  10. OXYCONTIN [Concomitant]
     Indication: BACK PAIN
     Dosage: 40 mg
     Route: 048
     Dates: start: 20110721
  11. PROCHLORPERAZINE [Concomitant]
     Dosage: 10 mg
     Route: 048
  12. ONDANSETRON [Concomitant]
     Route: 048
  13. CLONAZEPAM [Concomitant]
     Dosage: 0.5 mg
     Route: 048
     Dates: start: 20110807
  14. ALBUTEROL [Concomitant]
     Route: 055
     Dates: start: 20110807
  15. LACTULOSE [Concomitant]
     Route: 048
     Dates: start: 20110705

REACTIONS (9)
  - Pneumonia [Fatal]
  - Multi-organ failure [Fatal]
  - Disease progression [Fatal]
  - Hypothyroidism [Unknown]
  - Dyspnoea [Unknown]
  - Urinary tract infection [Unknown]
  - Candidiasis [Unknown]
  - Constipation [Unknown]
  - Gastrooesophageal reflux disease [Unknown]
